FAERS Safety Report 16872158 (Version 1)
Quarter: 2019Q4

REPORT INFORMATION
  Report Type: Spontaneous
  Country: ES (occurrence: ES)
  Receive Date: 20191001
  Receipt Date: 20191001
  Transmission Date: 20200122
  Serious: Yes (Other)
  Sender: FDA-Public Use
  Company Number: ES-TEVA-2019-ES-1115043

PATIENT
  Sex: Female

DRUGS (1)
  1. CIPROFLOXACINO [Suspect]
     Active Substance: CIPROFLOXACIN HYDROCHLORIDE
     Indication: URINARY TRACT INFECTION
     Dates: start: 2005, end: 201812

REACTIONS (16)
  - Diarrhoea [Unknown]
  - Chronic fatigue syndrome [Unknown]
  - Paraesthesia [Unknown]
  - Insomnia [Unknown]
  - Muscular weakness [Unknown]
  - Gait disturbance [Unknown]
  - Confusional state [Unknown]
  - Suicidal ideation [Unknown]
  - Nausea [Unknown]
  - Fibromyalgia [Unknown]
  - Pain in extremity [Unknown]
  - Hypoaesthesia [Unknown]
  - Feeling abnormal [Unknown]
  - Muscle spasms [Unknown]
  - Anxiety [Unknown]
  - Fatigue [Unknown]

NARRATIVE: CASE EVENT DATE: 2009
